FAERS Safety Report 7250722-2 (Version None)
Quarter: 2011Q1

REPORT INFORMATION
  Report Type: 
  Country: None (occurrence: None)
  Receive Date: 20110128
  Receipt Date: 20110121
  Transmission Date: 20110831
  Serious: Yes (Other)
  Sender: FDA-Public Use
  Company Number: FR-JNJFOC-20110106522

PATIENT
  Sex: Female
  Weight: 3.1 kg

DRUGS (2)
  1. TOPIRAMATE [Suspect]
     Indication: DRUG EXPOSURE DURING PREGNANCY
     Route: 063
  2. TOPIRAMATE [Suspect]
     Indication: DRUG EXPOSURE VIA BREAST MILK
     Route: 063

REACTIONS (5)
  - CYANOSIS [None]
  - BREAST FEEDING [None]
  - UPPER AIRWAY OBSTRUCTION [None]
  - APNOEA [None]
  - BRADYCARDIA [None]
